FAERS Safety Report 17052586 (Version 1)
Quarter: 2019Q4

REPORT INFORMATION
  Report Type: Spontaneous
  Country: IL (occurrence: IL)
  Receive Date: 20191120
  Receipt Date: 20191120
  Transmission Date: 20200122
  Serious: Yes (Hospitalization, Other)
  Sender: FDA-Public Use
  Company Number: IL-PFIZER INC-2019500178

PATIENT
  Age: 77 Year
  Sex: Male

DRUGS (15)
  1. COLECALCIFEROL [Concomitant]
     Active Substance: CHOLECALCIFEROL
     Dosage: UNK
     Route: 048
  2. SERTRALINE [Concomitant]
     Active Substance: SERTRALINE HYDROCHLORIDE
     Dosage: ORAL 100 MG 1 X 1
     Route: 048
  3. TOVIAZ [Suspect]
     Active Substance: FESOTERODINE FUMARATE
     Indication: BENIGN PROSTATIC HYPERPLASIA
  4. LANTUS [Concomitant]
     Active Substance: INSULIN GLARGINE
     Dosage: VIA 100 IU /1ML
  5. JANUET [Concomitant]
     Active Substance: METFORMIN HYDROCHLORIDE\SITAGLIPTIN PHOSPHATE
     Dosage: 50 MG /850MG
  6. VITAMIN D3 [Concomitant]
     Active Substance: CHOLECALCIFEROL
     Dosage: 200 TAB 600 MG /200IU ORAL 1 TAB
     Route: 048
  7. LITORVA [Concomitant]
     Active Substance: ATORVASTATIN CALCIUM
     Dosage: UNK
  8. SYSTANE ULTRA [Concomitant]
     Active Substance: POLYETHYLENE GLYCOL 400\PROPYLENE GLYCOL
     Dosage: LUBRICANT COL 0 CF BOTH EYES 2 DROP
  9. MICROPIRIN [Concomitant]
     Active Substance: ASPIRIN
  10. ENALAPRIL [ENALAPRIL MALEATE] [Concomitant]
     Active Substance: ENALAPRIL MALEATE
     Dosage: 5 MG, UNK (5 MG 1 X 1 )
     Route: 048
  11. TAMSULOSIN [Concomitant]
     Active Substance: TAMSULOSIN
     Dosage: UNK
  12. CALCIUM ACETATE. [Concomitant]
     Active Substance: CALCIUM ACETATE
  13. VITAMIN B12 [HYDROXOCOBALAMIN ACETATE] [Concomitant]
     Dosage: TAB 1000 MCG
     Route: 060
  14. REODON [Concomitant]
     Dosage: 29/M TAB 2 MG
  15. DOPICAR [Concomitant]
     Active Substance: CARBIDOPA\LEVODOPA
     Dosage: 250 MG /25MG ,0.25 TAB  1 X 3
     Route: 048

REACTIONS (7)
  - Off label use [Unknown]
  - Urinary retention [Unknown]
  - Apathy [Unknown]
  - Product use in unapproved indication [Unknown]
  - Gait disturbance [Unknown]
  - Dizziness [Unknown]
  - Headache [Unknown]
